FAERS Safety Report 24398389 (Version 1)
Quarter: 2024Q4

REPORT INFORMATION
  Report Type: Spontaneous
  Country: US (occurrence: US)
  Receive Date: 20241004
  Receipt Date: 20241004
  Transmission Date: 20250115
  Serious: No
  Sender: INTRA-CELLULAR THERAPIES
  Company Number: US-INTRA-CELLULAR THERAPIES, INC.-2024ICT01420

PATIENT
  Age: 64 Year
  Sex: Male
  Weight: 74.83 kg

DRUGS (5)
  1. CAPLYTA [Suspect]
     Active Substance: LUMATEPERONE
     Indication: Bipolar disorder
     Dosage: 42 MG, 1X/DAY AT NIGHT
     Route: 048
     Dates: start: 2023, end: 20240822
  2. CAPLYTA [Suspect]
     Active Substance: LUMATEPERONE
     Dosage: 42 MG, 1X/DAY
     Route: 048
     Dates: start: 20240827
  3. TRILEPTAL [Concomitant]
     Active Substance: OXCARBAZEPINE
  4. ZYPREXA [Concomitant]
     Active Substance: OLANZAPINE
  5. DULOXETINE [Concomitant]
     Active Substance: DULOXETINE

REACTIONS (4)
  - Middle insomnia [Recovering/Resolving]
  - Poor quality sleep [Recovering/Resolving]
  - Dysphonia [Recovering/Resolving]
  - Product dose omission issue [Recovered/Resolved]

NARRATIVE: CASE EVENT DATE: 20240823
